FAERS Safety Report 12526638 (Version 3)
Quarter: 2016Q3

REPORT INFORMATION
  Report Type: Spontaneous
  Country: JP (occurrence: JP)
  Receive Date: 20160705
  Receipt Date: 20160825
  Transmission Date: 20161109
  Serious: Yes (Other)
  Sender: FDA-Public Use
  Company Number: JP-009507513-1607JPN000698

PATIENT
  Sex: Female

DRUGS (1)
  1. TEMODAL [Suspect]
     Active Substance: TEMOZOLOMIDE
     Dosage: DAILY DOSAGE UNKNOWN
     Route: 041
     Dates: start: 20160628

REACTIONS (2)
  - Urinary bladder haemorrhage [Unknown]
  - Vaginal discharge [Unknown]

NARRATIVE: CASE EVENT DATE: 201606
